FAERS Safety Report 18341848 (Version 1)
Quarter: 2020Q4

REPORT INFORMATION
  Report Type: Spontaneous
  Country: FR (occurrence: FR)
  Receive Date: 20201005
  Receipt Date: 20201005
  Transmission Date: 20210113
  Serious: Yes (Other)
  Sender: FDA-Public Use
  Company Number: FR-PFIZER INC-2020376009

PATIENT
  Age: 49 Year
  Sex: Male

DRUGS (4)
  1. SERESTA [Suspect]
     Active Substance: OXAZEPAM
     Dosage: UNK
     Route: 065
     Dates: end: 2019
  2. TABACUM [Suspect]
     Active Substance: TOBACCO LEAF
     Indication: TOBACCO USER
     Dosage: UNK (FROM 10 TO 12 CIGARETTES/DAY)
     Route: 054
     Dates: start: 1998, end: 20200729
  3. CANNABIS [Suspect]
     Active Substance: CANNABIS SATIVA SUBSP. INDICA TOP
     Dosage: UNK (FROM  1 TO 2 TIMES/ MONTH)
     Route: 054
     Dates: start: 1999, end: 202007
  4. XANAX [Suspect]
     Active Substance: ALPRAZOLAM
     Dosage: UNK
     Route: 065
     Dates: end: 2019

REACTIONS (2)
  - Drug abuse [Unknown]
  - Substance abuse [Not Recovered/Not Resolved]
